FAERS Safety Report 20561462 (Version 1)
Quarter: 2022Q1

REPORT INFORMATION
  Report Type: Report from Study
  Country: BR (occurrence: BR)
  Receive Date: 20220307
  Receipt Date: 20220307
  Transmission Date: 20220423
  Serious: Yes (Other)
  Sender: FDA-Public Use
  Company Number: BR-NOVARTISPH-NVSC2021BR072949

PATIENT
  Age: 64 Year
  Sex: Male

DRUGS (1)
  1. EXELON [Suspect]
     Active Substance: RIVASTIGMINE TARTRATE
     Indication: Product used for unknown indication
     Dosage: 1.5 MG, 30 TABLETS
     Route: 048

REACTIONS (6)
  - Paralysis [Unknown]
  - Gait inability [Unknown]
  - Hemiparesis [Unknown]
  - Akinesia [Unknown]
  - Head injury [Unknown]
  - Fall [Unknown]
